FAERS Safety Report 13333534 (Version 2)
Quarter: 2017Q1

REPORT INFORMATION
  Report Type: Spontaneous
  Country: HU (occurrence: HU)
  Receive Date: 20170313
  Receipt Date: 20170320
  Transmission Date: 20170428
  Serious: Yes (Other)
  Sender: FDA-Public Use
  Company Number: HU-PFIZER INC-2017102866

PATIENT
  Age: 8 Year
  Sex: Male

DRUGS (4)
  1. REFACTO AF [Suspect]
     Active Substance: ANTIHEMOPHILIC FACTOR, HUMAN RECOMBINANT RESIDUES 743-1636 DELETED
     Dosage: PROPHYLACTICALLY 3 TIMES A WEEK
  2. REFACTO AF [Suspect]
     Active Substance: ANTIHEMOPHILIC FACTOR, HUMAN RECOMBINANT RESIDUES 743-1636 DELETED
     Indication: FACTOR VIII DEFICIENCY
     Dosage: UNK UNK, DAILY FOR 4 DAYS
     Dates: start: 2016
  3. HELIXATE [Suspect]
     Active Substance: ANTIHEMOPHILIC FACTOR, HUMAN RECOMBINANT
     Indication: FACTOR VIII DEFICIENCY
     Dosage: UNK UNK, DAILY FOR 4 DAYS
     Dates: start: 201411, end: 2015
  4. HELIXATE [Suspect]
     Active Substance: ANTIHEMOPHILIC FACTOR, HUMAN RECOMBINANT
     Dosage: PROPHYLACTICALLY 3 TIMES A WEEK
     Dates: end: 2015

REACTIONS (6)
  - C-reactive protein increased [Unknown]
  - Arthropathy [Unknown]
  - Haemarthrosis [Unknown]
  - Joint destruction [Unknown]
  - Pyrexia [Recovered/Resolved]
  - Joint range of motion decreased [Unknown]
